FAERS Safety Report 7930511-3 (Version None)
Quarter: 2011Q4

REPORT INFORMATION
  Report Type: 
  Country: None (occurrence: None)
  Receive Date: 20111121
  Receipt Date: 20111107
  Transmission Date: 20120403
  Serious: Yes (Life-Threatening, Hospitalization)
  Sender: FDA-Public Use
  Company Number: US-ROCHE-1013076

PATIENT

DRUGS (9)
  1. IFOSFAMIDE [Suspect]
     Indication: OSTEOSARCOMA METASTATIC
     Route: 042
     Dates: start: 20040924
  2. CISPLATIN [Suspect]
     Indication: OSTEOSARCOMA METASTATIC
     Route: 042
     Dates: start: 20040924
  3. LEUCOVORIN CALCIUM [Suspect]
     Indication: OSTEOSARCOMA METASTATIC
     Route: 042
     Dates: start: 20040924
  4. METHOTREXATE [Suspect]
     Indication: OSTEOSARCOMA METASTATIC
     Route: 042
     Dates: start: 20040924
  5. HERCEPTIN [Suspect]
     Indication: OSTEOSARCOMA METASTATIC
     Dosage: LOADING DOSE OF 4 MG/KG GIVEN ON DAY 1
     Route: 042
     Dates: start: 20040924
  6. DOXORUBICIN HCL [Suspect]
     Indication: OSTEOSARCOMA METASTATIC
     Route: 042
     Dates: start: 20040924
  7. DEXRAZOXANE HYDROCHLORIDE [Suspect]
     Indication: OSTEOSARCOMA METASTATIC
     Route: 042
     Dates: start: 20040924
  8. MESNA [Suspect]
     Indication: OSTEOSARCOMA METASTATIC
     Route: 042
     Dates: start: 20040924
  9. ETOPOSIDE [Suspect]
     Indication: OSTEOSARCOMA METASTATIC
     Dates: start: 20040924

REACTIONS (7)
  - CAECITIS [None]
  - ASPARTATE AMINOTRANSFERASE INCREASED [None]
  - PERICARDIAL EFFUSION [None]
  - ALANINE AMINOTRANSFERASE INCREASED [None]
  - CONFUSIONAL STATE [None]
  - PSYCHOTIC DISORDER [None]
  - INFECTION [None]
